FAERS Safety Report 5740749-1 (Version None)
Quarter: 2008Q2

REPORT INFORMATION
  Report Type: 
  Country: None (occurrence: None)
  Receive Date: 20080516
  Receipt Date: 20080506
  Transmission Date: 20081010
  Serious: Yes (Death, Life-Threatening, Hospitalization, Other)
  Sender: FDA-Public Use
  Company Number: IL-PFIZER INC-2007012728

PATIENT
  Sex: Male
  Weight: 82 kg

DRUGS (8)
  1. SU-011,248 [Suspect]
     Indication: RENAL CELL CARCINOMA
     Route: 048
     Dates: start: 20060827, end: 20060908
  2. SU-011,248 [Suspect]
     Route: 048
     Dates: start: 20060926, end: 20070123
  3. DISOTHIAZIDE [Concomitant]
     Route: 048
  4. LOSEC I.V. [Concomitant]
     Route: 048
     Dates: start: 20030901
  5. NORMITEN [Concomitant]
     Route: 048
     Dates: start: 19950101
  6. SIMVASTATIN [Concomitant]
     Route: 048
  7. CITALOPRAM HYDROBROMIDE [Concomitant]
     Route: 048
     Dates: start: 20030901
  8. BONDORMIN [Concomitant]
     Route: 048
     Dates: start: 20030901

REACTIONS (3)
  - MULTI-ORGAN FAILURE [None]
  - SCROTAL HAEMATOCOELE [None]
  - THROMBOCYTOPENIA [None]
